FAERS Safety Report 25680838 (Version 1)
Quarter: 2025Q3

REPORT INFORMATION
  Report Type: Spontaneous
  Country: CN (occurrence: CN)
  Receive Date: 20250814
  Receipt Date: 20250814
  Transmission Date: 20251021
  Serious: Yes (Other)
  Sender: BAXTER
  Company Number: None

PATIENT
  Age: 32 Year
  Sex: Female
  Weight: 50 kg

DRUGS (6)
  1. CYCLOPHOSPHAMIDE [Suspect]
     Active Substance: CYCLOPHOSPHAMIDE
     Indication: Invasive breast carcinoma
     Dosage: 785 MG, EVERY 3 WK WITH 500 ML SODIUM CHLORIDE
     Route: 041
     Dates: start: 20250522, end: 20250711
  2. DOXORUBICIN HYDROCHLORIDE [Suspect]
     Active Substance: DOXORUBICIN HYDROCHLORIDE
     Indication: Invasive breast carcinoma
     Dosage: 55 MG, EVERY 3 WK WITH 250 ML GLUCOSE
     Route: 041
     Dates: start: 20250522, end: 20250711
  3. PACLITAXEL [Suspect]
     Active Substance: PACLITAXEL
     Indication: Invasive breast carcinoma
     Dosage: 400 MG, EVERY 3 WK WITH 80 ML SODIUM CHLORIDE
     Route: 041
     Dates: start: 20250522, end: 20250711
  4. SODIUM CHLORIDE [Suspect]
     Active Substance: SODIUM CHLORIDE
     Indication: Medication dilution
     Dosage: 500 ML, EVERY 3 WK Q21D, (APPROVAL NO: H51021158 WITH CYCLOPHOSPHAMIDE)
     Route: 041
     Dates: start: 20250522, end: 20250711
  5. SODIUM CHLORIDE [Suspect]
     Active Substance: SODIUM CHLORIDE
     Dosage: 80 ML, EVERY 3 WK, Q21D (APPROVAL NO: H51021156 WITH PACLITAXEL (ALBUMIN-BINDING))
     Route: 041
     Dates: start: 20250522, end: 20250711
  6. DEXTROSE [Suspect]
     Active Substance: DEXTROSE MONOHYDRATE
     Indication: Medication dilution
     Dosage: 250 ML, EVERY 3 WK, ONCE IN 21 DAYS, Q21D, (WITH DOXORUBICIN LIPOSOME)
     Route: 041
     Dates: start: 20250522, end: 20250711

REACTIONS (6)
  - Skin injury [Recovering/Resolving]
  - Skin exfoliation [Unknown]
  - Hyperaemia [Unknown]
  - Ulcer [Recovering/Resolving]
  - Rash [Unknown]
  - Discomfort [Unknown]

NARRATIVE: CASE EVENT DATE: 20250713
